FAERS Safety Report 5128258-4 (Version None)
Quarter: 2006Q4

REPORT INFORMATION
  Report Type: 
  Country: None (occurrence: None)
  Receive Date: 20061011
  Receipt Date: 20060920
  Transmission Date: 20070319
  Serious: Yes (Hospitalization)
  Sender: FDA-Public Use
  Company Number: US_0509122155

PATIENT
  Age: 29 Year
  Sex: Female
  Weight: 73.5 kg

DRUGS (12)
  1. ZYPREXA [Suspect]
     Indication: BIPOLAR DISORDER
     Dosage: 5  + 10 MG, EACH EVENNG, ORAL - SEE IMAGE
     Route: 048
     Dates: start: 19970101, end: 19980301
  2. ZYPREXA [Suspect]
     Indication: BIPOLAR DISORDER
     Dosage: 5  + 10 MG, EACH EVENNG, ORAL - SEE IMAGE
     Route: 048
     Dates: start: 19980301, end: 19980401
  3. ZYPREXA [Suspect]
     Indication: BIPOLAR DISORDER
     Dosage: 5  + 10 MG, EACH EVENNG, ORAL - SEE IMAGE
     Route: 048
     Dates: start: 19980401, end: 19990201
  4. PROZAC [Suspect]
     Dosage: 20 + 40 + 50 + 40 + 20MG, UNK, ORAL - SEE IMAGE
     Route: 048
  5. PRENATAL VITAMINS (ASCORBIC ACID, BIOTIN, MINERALS NOS, NICOTINIC ACID [Concomitant]
  6. MAALOX PLUS EXTRA STRENGTH (ALUMINIUM HYDROXIDE, MAGNESIUM HYDROXIDE, [Concomitant]
  7. MEPERIDINE HCL [Concomitant]
  8. MILK OF MAGNESIA TAB [Concomitant]
  9. ALPRAZOLAM [Concomitant]
  10. IRON (IRON) [Concomitant]
  11. LIBRIUM [Concomitant]
  12. PHENERGAN (PROMETHAZINE HYDROCHLORIDE) [Concomitant]

REACTIONS (13)
  - BLOOD CHOLESTEROL ABNORMAL [None]
  - BREECH DELIVERY [None]
  - CAESAREAN SECTION [None]
  - DRUG EXPOSURE DURING PREGNANCY [None]
  - GESTATIONAL DIABETES [None]
  - HAEMATEMESIS [None]
  - HAEMATOCHEZIA [None]
  - HALLUCINATION, AUDITORY [None]
  - HALLUCINATION, VISUAL [None]
  - MULTIPLE DRUG OVERDOSE INTENTIONAL [None]
  - PRE-ECLAMPSIA [None]
  - PREGNANCY [None]
  - RECTAL HAEMORRHAGE [None]
